FAERS Safety Report 9582931 (Version 1)
Quarter: 2013Q4

REPORT INFORMATION
  Report Type: Spontaneous
  Country: US (occurrence: US)
  Receive Date: 20131002
  Receipt Date: 20131002
  Transmission Date: 20140711
  Serious: No
  Sender: FDA-Public Use
  Company Number: US-AMGEN-USASP2013044032

PATIENT
  Age: 38 Year
  Sex: Male
  Weight: 86.17 kg

DRUGS (2)
  1. ENBREL [Suspect]
     Indication: PRODUCT USED FOR UNKNOWN INDICATION
     Dosage: 50 MG, QWK
     Route: 058
  2. LODINE [Concomitant]
     Dosage: 400 MG, UNK
     Route: 048

REACTIONS (1)
  - Injection site reaction [Recovered/Resolved]
